FAERS Safety Report 7716312-X (Version None)
Quarter: 2011Q3

REPORT INFORMATION
  Report Type: 
  Country: None (occurrence: None)
  Receive Date: 20110829
  Receipt Date: 20110818
  Transmission Date: 20111222
  Serious: Yes (Other)
  Sender: FDA-Public Use
  Company Number: PHEH2011US01740

PATIENT
  Sex: Female
  Weight: 63.039 kg

DRUGS (4)
  1. NUVIGIL 250 [Concomitant]
     Dosage: UNK UKN, UNK
     Route: 048
  2. GILENYA [Suspect]
     Indication: MULTIPLE SCLEROSIS
     Dosage: 0.5 MG, QD
     Route: 048
     Dates: start: 20110812, end: 20110812
  3. AMBENE [Concomitant]
     Dosage: UNK UKN, QHS
  4. VALIUM [Concomitant]
     Dosage: UNK UKN, TID
     Route: 048

REACTIONS (5)
  - SINUS BRADYCARDIA [None]
  - DYSPNOEA [None]
  - VOMITING [None]
  - CHEST PAIN [None]
  - AXILLARY PAIN [None]
